FAERS Safety Report 15636361 (Version 3)
Quarter: 2018Q4

REPORT INFORMATION
  Report Type: Other
  Country: PL (occurrence: PL)
  Receive Date: 20181120
  Receipt Date: 20181211
  Transmission Date: 20190205
  Serious: Yes (Life-Threatening, Disabling, Other)
  Sender: FDA-Public Use
  Company Number: PL-APOTEX-2018AP024666

PATIENT
  Age: 62 Year
  Sex: Male
  Weight: 137 kg

DRUGS (7)
  1. ZOLPIDEM [Interacting]
     Active Substance: ZOLPIDEM\ZOLPIDEM TARTRATE
     Indication: POST STROKE DEPRESSION
     Dosage: UNK
     Route: 048
  2. SOTALOL. [Concomitant]
     Active Substance: SOTALOL
     Indication: CEREBROVASCULAR ACCIDENT
     Dosage: UNK
     Route: 065
  3. WARFARIN SODIUM. [Interacting]
     Active Substance: WARFARIN SODIUM
     Indication: CEREBROVASCULAR ACCIDENT
     Dosage: UNK
     Route: 065
  4. SERTRALINE [Suspect]
     Active Substance: SERTRALINE HYDROCHLORIDE
     Indication: POST STROKE DEPRESSION
     Dosage: UNK
     Route: 065
  5. GINKGO BILOBA [Interacting]
     Active Substance: GINKGO
     Indication: CEREBROVASCULAR ACCIDENT
     Dosage: UNK
     Route: 065
  6. SERTRALINE [Interacting]
     Active Substance: SERTRALINE HYDROCHLORIDE
     Indication: INSOMNIA
  7. ZOLPIDEM [Interacting]
     Active Substance: ZOLPIDEM\ZOLPIDEM TARTRATE
     Indication: INSOMNIA

REACTIONS (3)
  - Ischaemic stroke [Unknown]
  - Drug interaction [Unknown]
  - Apallic syndrome [Unknown]
